FAERS Safety Report 9577643 (Version 2)
Quarter: 2014Q1

REPORT INFORMATION
  Report Type: Spontaneous
  Country: US (occurrence: US)
  Receive Date: 20131001
  Receipt Date: 20140226
  Transmission Date: 20141002
  Serious: Yes (Death, Hospitalization, Other)
  Sender: FDA-Public Use
  Company Number: US-BRISTOL-MYERS SQUIBB COMPANY-19458389

PATIENT
  Age: 64 Year
  Sex: Male
  Weight: 91.61 kg

DRUGS (4)
  1. EXENATIDE [Suspect]
  2. COUMADIN [Suspect]
  3. VITAMIN D [Concomitant]
     Indication: VITAMIN SUPPLEMENTATION
  4. CALCIUM LACTATE [Concomitant]
     Indication: BLOOD CALCIUM DECREASED

REACTIONS (6)
  - Pancreatic carcinoma [Fatal]
  - Renal failure [Fatal]
  - Toxicity to various agents [Unknown]
  - Jaundice [Unknown]
  - Weight decreased [Unknown]
  - Cellulitis [Unknown]
